FAERS Safety Report 7625957-7 (Version None)
Quarter: 2011Q3

REPORT INFORMATION
  Report Type: 
  Country: None (occurrence: None)
  Receive Date: 20110721
  Receipt Date: 20110721
  Transmission Date: 20111222
  Serious: No
  Sender: FDA-Public Use
  Company Number: None

PATIENT
  Age: 73 Year
  Sex: Female
  Weight: 70.306 kg

DRUGS (1)
  1. MORPHINE SULFATE [Suspect]
     Indication: BACK PAIN
     Dates: start: 20110213, end: 20110220

REACTIONS (8)
  - DISORIENTATION [None]
  - QUALITY OF LIFE DECREASED [None]
  - HYPERACUSIS [None]
  - DEPRESSION [None]
  - DIZZINESS [None]
  - DYSSTASIA [None]
  - TINNITUS [None]
  - STRESS [None]
